FAERS Safety Report 4287642-1 (Version None)
Quarter: 2004Q1

REPORT INFORMATION
  Report Type: 
  Country: None (occurrence: None)
  Receive Date: 20040209
  Receipt Date: 20030814
  Transmission Date: 20041129
  Serious: No
  Sender: FDA-Public Use
  Company Number: US-GLAXOSMITHKLINE-A0421222A

PATIENT
  Age: 60 Year
  Sex: Female

DRUGS (4)
  1. PAXIL [Suspect]
     Indication: POST-TRAUMATIC STRESS DISORDER
     Dosage: 12.5MG PER DAY
     Route: 048
     Dates: start: 20030731
  2. LANOXIN [Concomitant]
  3. TENORMIN [Concomitant]
  4. KLONOPIN [Concomitant]

REACTIONS (1)
  - BLOOD GLUCOSE INCREASED [None]
